FAERS Safety Report 5538461-7 (Version None)
Quarter: 2007Q4

REPORT INFORMATION
  Report Type: 
  Country: None (occurrence: None)
  Receive Date: 20071205
  Receipt Date: 20071120
  Transmission Date: 20080405
  Serious: Yes (Life-Threatening)
  Sender: FDA-Public Use
  Company Number: 2007S1012120

PATIENT
  Age: 44 Year
  Sex: Male
  Weight: 75 kg

DRUGS (4)
  1. DURAZANIL (BROMAZEPAM) (6 MG) [Suspect]
     Indication: DRUG USE FOR UNKNOWN INDICATION
     Dosage: 60 MG;TOTAL;ORAL
     Route: 048
  2. CARBAMAZEPINE [Suspect]
     Dosage: 26800 MG;TOTAL;ORAL
     Route: 048
  3. DOXEPIN HCL [Suspect]
     Dosage: 2400 MG; TOTAL; ORAL
     Route: 048
  4. ZOPICLONE 7.5 MG [Suspect]
     Dosage: 300 MG; TOTAL;ORAL
     Route: 048

REACTIONS (3)
  - COMA [None]
  - MULTIPLE DRUG OVERDOSE INTENTIONAL [None]
  - SUICIDE ATTEMPT [None]
